FAERS Safety Report 17973023 (Version 1)
Quarter: 2020Q3

REPORT INFORMATION
  Report Type: Spontaneous
  Country: US (occurrence: US)
  Receive Date: 20200701
  Receipt Date: 20200701
  Transmission Date: 20201103
  Serious: Yes (Other)
  Sender: FDA-Public Use
  Company Number: None

PATIENT
  Age: 39 Year
  Sex: Male
  Weight: 81 kg

DRUGS (1)
  1. CHANTIX [Suspect]
     Active Substance: VARENICLINE TARTRATE
     Indication: SMOKING CESSATION THERAPY
     Dosage: ?          OTHER FREQUENCY:THE DOSING CHANGES;?
     Route: 048

REACTIONS (5)
  - Alcohol use [None]
  - Homicidal ideation [None]
  - Suicidal ideation [None]
  - Alcoholism [None]
  - Abnormal behaviour [None]

NARRATIVE: CASE EVENT DATE: 20200630
